FAERS Safety Report 17689549 (Version 2)
Quarter: 2020Q2

REPORT INFORMATION
  Report Type: Spontaneous
  Country: IT (occurrence: IT)
  Receive Date: 20200421
  Receipt Date: 20200625
  Transmission Date: 20200714
  Serious: Yes (Life-Threatening, Other)
  Sender: FDA-Public Use
  Company Number: NVSC2020IT105568

PATIENT
  Age: 66 Year
  Sex: Male

DRUGS (1)
  1. AMOXICILLIN. [Suspect]
     Active Substance: AMOXICILLIN
     Indication: INFECTION
     Dosage: 1 G, BID
     Route: 048

REACTIONS (4)
  - Dysphagia [Recovered/Resolved]
  - Myasthenia gravis [Recovered/Resolved]
  - Mastication disorder [Recovered/Resolved]
  - Dropped head syndrome [Recovered/Resolved]
